FAERS Safety Report 5383671-5 (Version None)
Quarter: 2007Q3

REPORT INFORMATION
  Report Type: 
  Country: None (occurrence: None)
  Receive Date: 20070706
  Receipt Date: 20070625
  Transmission Date: 20080115
  Serious: No
  Sender: FDA-Public Use
  Company Number: 070625064

PATIENT
  Sex: Female

DRUGS (1)
  1. PRAMOSONE [Suspect]
     Indication: DERMATITIS
     Dosage: TOPICAL
     Route: 061
     Dates: start: 20070624

REACTIONS (2)
  - BURNING SENSATION [None]
  - SWELLING [None]
